FAERS Safety Report 6617683-8 (Version None)
Quarter: 2010Q1

REPORT INFORMATION
  Report Type: 
  Country: None (occurrence: None)
  Receive Date: 20100308
  Receipt Date: 20100222
  Transmission Date: 20100710
  Serious: Yes (Other)
  Sender: FDA-Public Use
  Company Number: PHHY2010NZ10348

PATIENT
  Sex: Male

DRUGS (1)
  1. CLOZARIL [Suspect]
     Indication: SCHIZOPHRENIA
     Dosage: 200 MG, BID
     Dates: start: 20091109

REACTIONS (10)
  - ABNORMAL BEHAVIOUR [None]
  - ANXIETY [None]
  - CONSTIPATION [None]
  - DIZZINESS [None]
  - MIDDLE INSOMNIA [None]
  - SALIVARY HYPERSECRETION [None]
  - SOMNOLENCE [None]
  - SWELLING FACE [None]
  - URINARY INCONTINENCE [None]
  - VOMITING [None]
